FAERS Safety Report 5968301-3 (Version None)
Quarter: 2008Q4

REPORT INFORMATION
  Report Type: 
  Country: None (occurrence: None)
  Receive Date: 20081126
  Receipt Date: 20081117
  Transmission Date: 20090506
  Serious: Yes (Hospitalization)
  Sender: FDA-Public Use
  Company Number: JP-ELI_LILLY_AND_COMPANY-JP200811003871

PATIENT
  Age: 55 Year
  Sex: Male

DRUGS (9)
  1. GEMZAR [Suspect]
     Indication: NON-SMALL CELL LUNG CANCER
     Dosage: UNK, UNK
     Route: 042
     Dates: start: 20080904, end: 20080901
  2. GEMZAR [Suspect]
     Dosage: 1600 MG, UNK
     Route: 042
     Dates: start: 20080925, end: 20080925
  3. CISPLATIN [Concomitant]
     Indication: NON-SMALL CELL LUNG CANCER
     Route: 042
     Dates: start: 20080904, end: 20080901
  4. CARBOPLATIN [Concomitant]
     Indication: NON-SMALL CELL LUNG CANCER
     Dosage: 375 MG, UNK
     Route: 042
     Dates: start: 20080925, end: 20080925
  5. LOXONIN [Concomitant]
     Indication: CANCER PAIN
     Dosage: 180 MG, DAILY (1/D)
     Route: 048
     Dates: start: 20080827
  6. RABEPRAZOLE SODIUM [Concomitant]
     Indication: PROPHYLAXIS AGAINST GASTROINTESTINAL ULCER
     Dosage: 10 MG, DAILY (1/D)
     Route: 048
     Dates: start: 20080828
  7. NOVAMIN [Concomitant]
     Indication: VOMITING
     Dosage: 15 MG, DAILY (1/D)
     Route: 048
     Dates: start: 20080901
  8. MAGMITT [Concomitant]
     Indication: CONSTIPATION
     Dosage: UNK, DAILY (1/D)
     Route: 048
     Dates: start: 20080901
  9. OXYCONTIN [Concomitant]
     Indication: CANCER PAIN
     Dosage: 15 MG, DAILY (1/D)
     Route: 048
     Dates: start: 20080920

REACTIONS (1)
  - VENOUS THROMBOSIS [None]
